FAERS Safety Report 7776980-3 (Version None)
Quarter: 2011Q3

REPORT INFORMATION
  Report Type: 
  Country: None (occurrence: None)
  Receive Date: 20110926
  Receipt Date: 20110919
  Transmission Date: 20111222
  Serious: Yes (Other)
  Sender: FDA-Public Use
  Company Number: FR-SANOFI-AVENTIS-2011SA061580

PATIENT
  Age: 52 Year
  Sex: Male

DRUGS (13)
  1. DEXAMETHASONE [Suspect]
     Indication: PREMEDICATION
     Dosage: 8 MG AT 12 HOURS, 3 HOURS AND 1 HOUR PRIOR TO DOCETAXEL INFUSION
     Route: 065
     Dates: start: 20091029
  2. SODIUM BICARBONATE AND METHYL SALICYLATE AND MENTHOL AND SALICYLATE SO [Concomitant]
     Route: 065
     Dates: start: 20091207
  3. TAXOTERE [Suspect]
     Indication: PROSTATE CANCER
     Route: 041
     Dates: start: 20091029, end: 20091029
  4. TAXOTERE [Suspect]
     Route: 041
     Dates: start: 20100211, end: 20100211
  5. DECAPEPTYL /SWE/ [Concomitant]
     Dates: start: 20090716
  6. ACETAMINOPHEN [Concomitant]
     Route: 065
     Dates: start: 20091101
  7. GAVISCON [Concomitant]
     Route: 065
     Dates: start: 20091017
  8. PREDNISONE [Suspect]
     Indication: PROSTATE CANCER
     Route: 048
     Dates: start: 20091029, end: 20100211
  9. MYCOSTATIN [Concomitant]
     Route: 065
     Dates: start: 20091207
  10. RANITIDINE [Concomitant]
     Route: 065
     Dates: start: 20091128
  11. FUNGIZONE [Concomitant]
     Route: 065
     Dates: start: 20091207
  12. BLINDED THERAPY [Suspect]
     Indication: PROSTATE CANCER
     Route: 048
     Dates: start: 20091029
  13. CASODEX [Concomitant]
     Route: 065
     Dates: start: 20081007

REACTIONS (1)
  - CUTANEOUS LUPUS ERYTHEMATOSUS [None]
